FAERS Safety Report 25337675 (Version 1)
Quarter: 2025Q2

REPORT INFORMATION
  Report Type: Spontaneous
  Country: US (occurrence: US)
  Receive Date: 20250520
  Receipt Date: 20250520
  Transmission Date: 20250716
  Serious: No
  Sender: SEPTODONT
  Company Number: US-SEPTODONT-2025019353

PATIENT

DRUGS (1)
  1. CARBOCAINE [Suspect]
     Active Substance: MEPIVACAINE HYDROCHLORIDE
     Indication: Dental local anaesthesia
     Route: 004
     Dates: start: 20241108

REACTIONS (3)
  - Postural orthostatic tachycardia syndrome [Unknown]
  - Depression [Unknown]
  - Adverse event [Unknown]

NARRATIVE: CASE EVENT DATE: 20241108
